FAERS Safety Report 6587982-7 (Version None)
Quarter: 2010Q1

REPORT INFORMATION
  Report Type: 
  Country: None (occurrence: None)
  Receive Date: 20100218
  Receipt Date: 20100212
  Transmission Date: 20100710
  Serious: Yes (Other)
  Sender: FDA-Public Use
  Company Number: US-BRISTOL-MYERS SQUIBB COMPANY-14976757

PATIENT
  Age: 55 Year
  Sex: Female
  Weight: 86 kg

DRUGS (2)
  1. COUMADIN [Suspect]
  2. ASPIRIN [Suspect]
     Indication: CARDIAC DISORDER
     Route: 065
     Dates: start: 20091219, end: 20100111

REACTIONS (1)
  - RETINAL VASCULAR THROMBOSIS [None]
